FAERS Safety Report 8042993-X (Version None)
Quarter: 2012Q1

REPORT INFORMATION
  Report Type: 
  Country: None (occurrence: None)
  Receive Date: 20120112
  Receipt Date: 20120109
  Transmission Date: 20120608
  Serious: Yes (Other)
  Sender: FDA-Public Use
  Company Number: PHEH2010US03406

PATIENT
  Sex: Male

DRUGS (1)
  1. AREDIA [Suspect]
     Indication: MULTIPLE MYELOMA
     Dosage: UNK
     Dates: end: 20050301

REACTIONS (5)
  - BASAL CELL CARCINOMA [None]
  - HEPATIC ENZYME INCREASED [None]
  - CORNEAL ABRASION [None]
  - COLONIC POLYP [None]
  - GASTROOESOPHAGEAL REFLUX DISEASE [None]
